FAERS Safety Report 23649079 (Version 4)
Quarter: 2024Q3

REPORT INFORMATION
  Report Type: Spontaneous
  Country: US (occurrence: US)
  Receive Date: 20240319
  Receipt Date: 20240708
  Transmission Date: 20241016
  Serious: Yes (Hospitalization)
  Sender: AMGEN
  Company Number: US-AMGEN-USASP2024052626

PATIENT
  Age: 97 Year
  Sex: Female

DRUGS (1)
  1. ARANESP [Suspect]
     Active Substance: DARBEPOETIN ALFA
     Indication: Renal failure
     Dosage: 25 MICROGRAM, Q2WK (ONCE EVERY 2 WEEKS)
     Route: 058

REACTIONS (1)
  - Cardiac failure congestive [Not Recovered/Not Resolved]
